FAERS Safety Report 4838412-4 (Version None)
Quarter: 2005Q4

REPORT INFORMATION
  Report Type: 
  Country: None (occurrence: None)
  Receive Date: 20051128
  Receipt Date: 20050913
  Transmission Date: 20060501
  Serious: Yes (Hospitalization, Other)
  Sender: FDA-Public Use
  Company Number: PHHO2005US14506

PATIENT
  Age: 21 Year
  Sex: Female
  Weight: 45.1 kg

DRUGS (4)
  1. ATENOLOL [Concomitant]
     Indication: VENTRICULAR EXTRASYSTOLES
     Dosage: 25 MG, QD
     Route: 048
     Dates: start: 20030601
  2. ICL670 [Suspect]
     Indication: HAEMOSIDEROSIS
     Dosage: 10 MG/KG, QD
     Route: 048
     Dates: start: 20040801, end: 20050125
  3. ICL670 [Suspect]
     Dosage: 20 MG/KG, QD
     Route: 048
     Dates: start: 20050125, end: 20050912
  4. TRIAMCINOLONE [Concomitant]
     Indication: ECZEMA

REACTIONS (10)
  - BIOPSY LIVER [None]
  - DRUG INEFFECTIVE [None]
  - HAEMOSIDEROSIS [None]
  - HEPATIC CIRRHOSIS [None]
  - HEPATIC ENZYME INCREASED [None]
  - HEPATIC FIBROSIS [None]
  - HEPATIC HAEMATOMA [None]
  - HEPATITIS [None]
  - SERUM FERRITIN INCREASED [None]
  - TRANSAMINASES INCREASED [None]
